FAERS Safety Report 9841609 (Version 1)
Quarter: 2013Q4

REPORT INFORMATION
  Report Type: Spontaneous
  Country: US (occurrence: None)
  Receive Date: 20131211
  Receipt Date: 20131211
  Transmission Date: 20140711
  Serious: Yes (Other)
  Sender: FDA-Public Use
  Company Number: ALL1-2012-01247

PATIENT
  Age: 16 Year
  Sex: Female
  Weight: 65.8 kg

DRUGS (2)
  1. VYVANSE [Suspect]
     Indication: ATTENTION DEFICIT/HYPERACTIVITY DISORDER
     Dosage: 30 MG, 1X/DAY: QD (AFTER FOOD), UNKNOWN
     Dates: start: 20120229
  2. TOPAMAX (TOPIRAMATE) [Concomitant]

REACTIONS (4)
  - Dyspnoea [None]
  - Chest discomfort [None]
  - Abdominal discomfort [None]
  - Dizziness [None]
